FAERS Safety Report 12366657 (Version 1)
Quarter: 2016Q2

REPORT INFORMATION
  Report Type: Spontaneous
  Country: US (occurrence: US)
  Receive Date: 20160513
  Receipt Date: 20160513
  Transmission Date: 20160815
  Serious: Yes (Life-Threatening, Hospitalization)
  Sender: FDA-Public Use
  Company Number: US-ACCORD-040379

PATIENT
  Age: 87 Year
  Sex: Female

DRUGS (2)
  1. AMLODIPINE [Suspect]
     Active Substance: AMLODIPINE BESYLATE
     Dosage: MORE THAN 100 TABLETS?STRENGTH- 5MG
     Route: 048
  2. CARVEDILOL/CARVEDILOL HYDROCHLODRIDE [Suspect]
     Active Substance: CARVEDILOL
     Dosage: MORE THAN 100 TABLETS?STRENGTH- 3.125 MG
     Route: 048

REACTIONS (9)
  - Metabolic acidosis [Unknown]
  - Circulatory collapse [Unknown]
  - Overdose [Unknown]
  - Bradycardia [Unknown]
  - Acute kidney injury [Recovering/Resolving]
  - Respiratory failure [Not Recovered/Not Resolved]
  - Acute respiratory distress syndrome [Not Recovered/Not Resolved]
  - Mental status changes [Not Recovered/Not Resolved]
  - Hypotension [Not Recovered/Not Resolved]
